FAERS Safety Report 13164451 (Version 1)
Quarter: 2017Q1

REPORT INFORMATION
  Report Type: Report from Study
  Country: AR (occurrence: AR)
  Receive Date: 20170130
  Receipt Date: 20170130
  Transmission Date: 20170428
  Serious: Yes (Other)
  Sender: FDA-Public Use
  Company Number: PHHY2017AR012236

PATIENT
  Sex: Male

DRUGS (1)
  1. ENTRESTO [Suspect]
     Active Substance: SACUBITRIL\VALSARTAN
     Indication: CARDIAC FAILURE CHRONIC
     Dosage: 100 MG (2 DF), BID
     Route: 065
     Dates: start: 20160922

REACTIONS (3)
  - Choking [Recovering/Resolving]
  - Chest pain [Recovering/Resolving]
  - Malaise [Unknown]
